FAERS Safety Report 11214283 (Version 2)
Quarter: 2015Q3

REPORT INFORMATION
  Report Type: Report from Study
  Country: US (occurrence: US)
  Receive Date: 20150624
  Receipt Date: 20150812
  Transmission Date: 20151125
  Serious: Yes (Hospitalization)
  Sender: FDA-Public Use
  Company Number: US-AMGEN-USACT2015060238

PATIENT
  Age: 10 Year
  Sex: Male
  Weight: 39.6 kg

DRUGS (30)
  1. BENADRYL [Concomitant]
     Active Substance: DIPHENHYDRAMINE HYDROCHLORIDE
     Indication: SEASONAL ALLERGY
  2. BENADRYL [Concomitant]
     Active Substance: DIPHENHYDRAMINE HYDROCHLORIDE
     Indication: SINUS HEADACHE
  3. ZANTAC [Concomitant]
     Active Substance: RANITIDINE HYDROCHLORIDE
     Indication: ABDOMINAL PAIN UPPER
     Dosage: 75 MG, AS NECESSARY
     Route: 048
     Dates: start: 20130105
  4. AMOXICILLIN. [Concomitant]
     Active Substance: AMOXICILLIN
     Indication: PHARYNGITIS
     Dosage: 875 MG, BID
     Route: 048
     Dates: start: 20141021, end: 20141025
  5. AIRBORNE [Concomitant]
     Active Substance: HERBALS\MINERALS\VITAMINS
     Indication: PROPHYLAXIS
     Dosage: 1 DF, QD
     Route: 048
     Dates: start: 20141108
  6. DEXTROSE. [Concomitant]
     Active Substance: DEXTROSE
     Dosage: 50 ML, QD
     Route: 042
     Dates: start: 20150318
  7. BENADRYL [Concomitant]
     Active Substance: DIPHENHYDRAMINE HYDROCHLORIDE
     Indication: PROPHYLAXIS
     Dosage: 25 MG, AS NECESSARY
     Route: 048
     Dates: start: 20140328
  8. MELATONIN [Concomitant]
     Active Substance: MELATONIN
     Indication: INSOMNIA
     Dosage: 5 MG, AS NECESSARY
     Route: 048
     Dates: start: 201301
  9. ZOFRAN [Concomitant]
     Active Substance: ONDANSETRON HYDROCHLORIDE
     Indication: NAUSEA
     Dosage: 4 MG, AS NECESSARY
     Route: 048
     Dates: start: 20131121
  10. ROMIPLOSTIM [Suspect]
     Active Substance: ROMIPLOSTIM
     Indication: IMMUNE THROMBOCYTOPENIC PURPURA
     Dosage: 10 MUG/KG, QWK
     Route: 058
     Dates: start: 20130820
  11. PEDIA-LAX STOOL SOFTENER [Concomitant]
     Indication: CONSTIPATION
     Dosage: 3 DF, QD
     Route: 048
     Dates: start: 20150612
  12. PEDIA LAX PROBIOTIC YUMS [Concomitant]
     Indication: DIARRHOEA
     Dosage: 1 DF, QD
     Route: 048
     Dates: start: 20150518, end: 20150524
  13. TYLENOL [Concomitant]
     Active Substance: ACETAMINOPHEN
     Indication: PYREXIA
  14. ZOFRAN [Concomitant]
     Active Substance: ONDANSETRON HYDROCHLORIDE
     Indication: ASPIRATION BONE MARROW
  15. ACETAMINOPHEN W/HYDROCODONE [Concomitant]
     Active Substance: ACETAMINOPHEN\HYDROCODONE
     Indication: PAIN
     Dosage: 325 MG, AS NECESSARY
     Route: 048
     Dates: start: 20140702, end: 20140702
  16. TYLENOL [Concomitant]
     Active Substance: ACETAMINOPHEN
     Indication: HEADACHE
     Dosage: 325 MG, AS NECESSARY
     Route: 048
     Dates: start: 20120827
  17. INFLUENZA VACCINE [Concomitant]
     Active Substance: INFLUENZA VIRUS VACCINE
     Indication: PROPHYLAXIS
     Dosage: 0.5 ML, ONE TIME DOSE
     Route: 030
     Dates: start: 20131106, end: 20131106
  18. PROPOFOL. [Concomitant]
     Active Substance: PROPOFOL
     Indication: ASPIRATION BONE MARROW
     Dosage: 70 MG, QD
     Route: 042
     Dates: start: 20140702, end: 20140702
  19. SODIUM CHLORIDE. [Concomitant]
     Active Substance: SODIUM CHLORIDE
     Dosage: 8 ML, QD
     Route: 042
     Dates: start: 20150318
  20. CHILDREN CLARITIN ALLERGY [Concomitant]
     Active Substance: LORATADINE
     Indication: SEASONAL ALLERGY
     Dosage: 10 MG, AS NECESSARY
     Route: 048
     Dates: start: 2011
  21. MULTIVITAMIN                       /00097801/ [Concomitant]
     Active Substance: VITAMINS
     Indication: NUTRITIONAL SUPPLEMENTATION
     Dosage: 1 DF, QD
     Route: 048
     Dates: start: 20130206
  22. TYLENOL [Concomitant]
     Active Substance: ACETAMINOPHEN
     Indication: PHARYNGITIS
  23. MAGNESIUM HYDROXIDE. [Concomitant]
     Active Substance: MAGNESIUM HYDROXIDE
     Dosage: 400 MG, TID
     Route: 048
  24. MORPHINE SULPHATE [Concomitant]
     Active Substance: MORPHINE SULFATE
     Indication: ASPIRATION BONE MARROW
     Dosage: 2 MG, QD
     Route: 042
     Dates: start: 20140702, end: 20140702
  25. PEDIA-LAX STOOL SOFTENER [Concomitant]
     Indication: ABDOMINAL PAIN UPPER
  26. ZANTAC [Concomitant]
     Active Substance: RANITIDINE HYDROCHLORIDE
     Indication: BURNING SENSATION
  27. TYLENOL [Concomitant]
     Active Substance: ACETAMINOPHEN
     Indication: RHINITIS
  28. TYLENOL [Concomitant]
     Active Substance: ACETAMINOPHEN
     Indication: COUGH
  29. ZOFRAN [Concomitant]
     Active Substance: ONDANSETRON HYDROCHLORIDE
     Indication: ABDOMINAL PAIN UPPER
  30. TUMS                               /00193601/ [Concomitant]
     Active Substance: CALCIUM CARBONATE\MAGNESIUM CARBONATE\MAGNESIUM TRISILICATE
     Indication: ABDOMINAL PAIN UPPER
     Dosage: 2 DF, AS NECESSARY
     Route: 048
     Dates: start: 20140505

REACTIONS (1)
  - Haematochezia [Recovered/Resolved]

NARRATIVE: CASE EVENT DATE: 20150616
